FAERS Safety Report 13527584 (Version 2)
Quarter: 2017Q2

REPORT INFORMATION
  Report Type: Spontaneous
  Country: US (occurrence: US)
  Receive Date: 20170509
  Receipt Date: 20170510
  Transmission Date: 20170830
  Serious: Yes (Other)
  Sender: FDA-Public Use
  Company Number: US-PFIZER INC-2017198863

PATIENT
  Age: 51 Year
  Sex: Male
  Weight: 59 kg

DRUGS (10)
  1. LYRICA [Suspect]
     Active Substance: PREGABALIN
     Indication: SPINAL PAIN
  2. DIAZEPAM. [Suspect]
     Active Substance: DIAZEPAM
     Indication: AGITATION
     Dosage: 10 MG, 3X/DAY
     Route: 048
     Dates: end: 20170313
  3. FENTANYL. [Suspect]
     Active Substance: FENTANYL
     Indication: PAIN
     Dosage: 75MCG/HR ON A 72 HOUR ROTATION, WEARS FOR 72 HOURS
     Route: 062
  4. DILAUDID [Suspect]
     Active Substance: HYDROMORPHONE HYDROCHLORIDE
     Indication: PAIN
     Dosage: 8 MG, 3X/DAY
     Dates: end: 201703
  5. DIAZEPAM. [Suspect]
     Active Substance: DIAZEPAM
     Indication: NERVOUSNESS
  6. FENTANYL. [Suspect]
     Active Substance: FENTANYL
     Dosage: 75MCG/HR ON A 48 HOUR ROTATION, WEARS FOR 48 HOURS
     Route: 062
     Dates: end: 20170308
  7. OXYCODONE [Suspect]
     Active Substance: OXYCODONE
     Indication: PAIN
     Dosage: 30 MG, 3X/DAY (IN THE MORNING, AFTERNOON, AND THE EVENING AND IF HURTING BAD, TAKE ANOTHER 30 MG)
     Route: 048
  8. LYRICA [Suspect]
     Active Substance: PREGABALIN
     Indication: FIBROMYALGIA
     Dosage: 150 MG TABLET, 1X/DAY IN THE MORNING
     Dates: end: 201612
  9. DIAZEPAM. [Suspect]
     Active Substance: DIAZEPAM
     Indication: ANXIETY
  10. RITALIN [Suspect]
     Active Substance: METHYLPHENIDATE HYDROCHLORIDE
     Indication: LETHARGY
     Dosage: 10 MG, 1X/DAY
     Route: 048
     Dates: start: 201603, end: 201702

REACTIONS (16)
  - Logorrhoea [Recovered/Resolved]
  - Vision blurred [Not Recovered/Not Resolved]
  - Irritability [Recovered/Resolved]
  - Suicidal ideation [Recovered/Resolved]
  - Panic attack [Recovered/Resolved]
  - Condition aggravated [Recovered/Resolved]
  - Aggression [Recovered/Resolved]
  - Thinking abnormal [Unknown]
  - Brain neoplasm [Unknown]
  - Self-injurious ideation [Recovered/Resolved]
  - Mood altered [Recovered/Resolved]
  - Abnormal behaviour [Recovered/Resolved]
  - Post-traumatic stress disorder [Recovered/Resolved]
  - Restlessness [Recovered/Resolved]
  - Agitation [Recovered/Resolved]
  - Abnormal dreams [Unknown]

NARRATIVE: CASE EVENT DATE: 2016
